FAERS Safety Report 20516761 (Version 1)
Quarter: 2022Q1

REPORT INFORMATION
  Report Type: Spontaneous
  Country: CN (occurrence: CN)
  Receive Date: 20220225
  Receipt Date: 20220225
  Transmission Date: 20220423
  Serious: Yes (Other)
  Sender: FDA-Public Use
  Company Number: CN-BAXTER-2022BAX003912

PATIENT
  Age: 67 Year
  Sex: Male

DRUGS (8)
  1. CYCLOPHOSPHAMIDE [Suspect]
     Active Substance: CYCLOPHOSPHAMIDE
     Indication: Diffuse large B-cell lymphoma
     Dosage: CYCLOPHOSPHAMIDE FOR INJECTION 1 G + SODIUM CHLORIDE INJECTION 500 ML
     Route: 041
     Dates: start: 20220211, end: 20220211
  2. RITUXIMAB [Suspect]
     Active Substance: RITUXIMAB
     Indication: Diffuse large B-cell lymphoma
     Dosage: RITUXIMAB INJECTION 500 MG + GLUCOSE INJECTION 500 ML
     Route: 041
     Dates: start: 20220211, end: 20220211
  3. EPIRUBICIN HYDROCHLORIDE [Suspect]
     Active Substance: EPIRUBICIN HYDROCHLORIDE
     Indication: Diffuse large B-cell lymphoma
     Dosage: EPIRUBICIN HYDROCHLORIDE 100 MG + SODIUM CHLORIDE INJECTION 150 ML
     Route: 041
     Dates: start: 20220211, end: 20220211
  4. VINCRISTINE SULFATE [Suspect]
     Active Substance: VINCRISTINE SULFATE
     Indication: Diffuse large B-cell lymphoma
     Route: 041
     Dates: start: 20220211, end: 20220211
  5. PREDNISONE ACETATE [Suspect]
     Active Substance: PREDNISONE ACETATE
     Indication: Diffuse large B-cell lymphoma
     Dosage: DAY 1 TO 5
     Route: 048
     Dates: start: 20220211, end: 20220211
  6. DEXTROSE [Suspect]
     Active Substance: DEXTROSE
     Indication: Medication dilution
     Dosage: RITUXIMAB INJECTION 500 MG + GLUCOSE INJECTION 500 ML
     Route: 041
     Dates: start: 20220211, end: 20220211
  7. SODIUM CHLORIDE [Suspect]
     Active Substance: SODIUM CHLORIDE
     Indication: Medication dilution
     Dosage: CYCLOPHOSPHAMIDE FOR INJECTION 1 G + SODIUM CHLORIDE INJECTION 500 ML
     Route: 041
     Dates: start: 20220211, end: 20220211
  8. SODIUM CHLORIDE [Suspect]
     Active Substance: SODIUM CHLORIDE
     Indication: Medication dilution
     Dosage: EPIRUBICIN HYDROCHLORIDE 100 MG + SODIUM CHLORIDE INJECTION 150 ML
     Route: 041
     Dates: start: 20220211, end: 20220211

REACTIONS (3)
  - Oxygen saturation decreased [Recovering/Resolving]
  - Chills [Recovering/Resolving]
  - Pyrexia [Recovering/Resolving]

NARRATIVE: CASE EVENT DATE: 20220212
